FAERS Safety Report 6653225-9 (Version None)
Quarter: 2010Q1

REPORT INFORMATION
  Report Type: 
  Country: None (occurrence: None)
  Receive Date: 20100326
  Receipt Date: 20100323
  Transmission Date: 20100710
  Serious: Yes (Hospitalization)
  Sender: FDA-Public Use
  Company Number: BR-BRISTOL-MYERS SQUIBB COMPANY-14853493

PATIENT
  Age: 70 Year
  Sex: Male

DRUGS (4)
  1. ABATACEPT [Suspect]
     Indication: RHEUMATOID ARTHRITIS
     Route: 058
     Dates: start: 20090302
  2. METHOTREXATE [Suspect]
     Indication: RHEUMATOID ARTHRITIS
     Dates: start: 20080301
  3. PREDNISONE TAB [Concomitant]
     Dates: start: 20071201
  4. FOLIC ACID [Concomitant]
     Dates: start: 20080301

REACTIONS (2)
  - CHEST PAIN [None]
  - DYSPNOEA [None]
